FAERS Safety Report 21326033 (Version 2)
Quarter: 2023Q2

REPORT INFORMATION
  Report Type: Spontaneous
  Country: BR (occurrence: BR)
  Receive Date: 20220913
  Receipt Date: 20230506
  Transmission Date: 20230721
  Serious: Yes (Death, Hospitalization, Other)
  Sender: FDA-Public Use
  Company Number: BR-AUROBINDO-AUR-APL-2022-036747

PATIENT
  Age: 43 Year
  Sex: Male

DRUGS (3)
  1. BELEODAQ [Suspect]
     Active Substance: BELINOSTAT
     Indication: T-cell lymphoma refractory
     Dosage: UNK (THIRD LINE TREATMENT)
     Route: 065
  2. BELEODAQ [Suspect]
     Active Substance: BELINOSTAT
     Dosage: UNK,(5TH LINE OF TREATMENT)
     Route: 065
     Dates: start: 202205
  3. BRENTUXIMAB [Suspect]
     Active Substance: BRENTUXIMAB
     Indication: Product used for unknown indication
     Route: 065

REACTIONS (7)
  - Acquired immunodeficiency syndrome [Fatal]
  - Cytomegalovirus infection reactivation [Fatal]
  - Condition aggravated [Fatal]
  - Gastrointestinal haemorrhage [Fatal]
  - Disease progression [Fatal]
  - Drug ineffective [Fatal]
  - Aspergillus infection [Fatal]

NARRATIVE: CASE EVENT DATE: 20220501
